FAERS Safety Report 17683145 (Version 1)
Quarter: 2020Q2

REPORT INFORMATION
  Report Type: Spontaneous
  Country: CA (occurrence: CA)
  Receive Date: 20200420
  Receipt Date: 20200420
  Transmission Date: 20200714
  Serious: Yes (Death)
  Sender: FDA-Public Use
  Company Number: CA-ROCHE-2583898

PATIENT
  Age: 74 Year
  Sex: Male
  Weight: 68 kg

DRUGS (11)
  1. MORPHINE SULFATE. [Suspect]
     Active Substance: MORPHINE SULFATE
     Indication: COUGH
     Dosage: AS REQUIRED
     Route: 065
  2. CANNABIS SATIVA [Concomitant]
     Active Substance: CANNABIS SATIVA FLOWERING TOP
     Dosage: EVERY 1 DAYS
     Route: 065
  3. BISOPROLOL [Concomitant]
     Active Substance: BISOPROLOL
     Route: 065
  4. ESBRIET [Suspect]
     Active Substance: PIRFENIDONE
     Indication: IDIOPATHIC PULMONARY FIBROSIS
     Route: 048
  5. ALLOPURINOL. [Concomitant]
     Active Substance: ALLOPURINOL
     Route: 065
  6. OXYGEN. [Concomitant]
     Active Substance: OXYGEN
  7. METFORMIN [Concomitant]
     Active Substance: METFORMIN HYDROCHLORIDE
     Route: 065
  8. NORMETHADONE HYDROCHLORIDE;OXILOFRINE HYDROCHLORIDE [Concomitant]
     Indication: COUGH
     Dosage: EVERY 1 DAYS
     Route: 065
  9. RABEPRAZOLE [Concomitant]
     Active Substance: RABEPRAZOLE
     Route: 065
  10. ROSUVASTATIN. [Concomitant]
     Active Substance: ROSUVASTATIN
     Route: 065
  11. ASPIRIN [ACETYLSALICYLIC ACID] [Concomitant]
     Active Substance: ASPIRIN
     Route: 065

REACTIONS (15)
  - Appetite disorder [Fatal]
  - Gait disturbance [Fatal]
  - Malaise [Fatal]
  - Pulmonary function test abnormal [Fatal]
  - Weight decreased [Fatal]
  - Decreased appetite [Fatal]
  - Tooth infection [Fatal]
  - Cough [Fatal]
  - Asthenia [Fatal]
  - Death [Fatal]
  - Constipation [Fatal]
  - Dyspnoea [Fatal]
  - Fatigue [Fatal]
  - Frustration tolerance decreased [Fatal]
  - Nausea [Fatal]
